FAERS Safety Report 18835942 (Version 2)
Quarter: 2022Q1

REPORT INFORMATION
  Report Type: Spontaneous
  Country: US (occurrence: US)
  Receive Date: 20210203
  Receipt Date: 20220128
  Transmission Date: 20220423
  Serious: No
  Sender: FDA-Public Use
  Company Number: US-ALLERGAN-2042886US

PATIENT
  Sex: Female

DRUGS (1)
  1. BOTOX COSMETIC [Suspect]
     Active Substance: ONABOTULINUMTOXINA
     Indication: Skin wrinkling
     Dosage: 35 UNITS, SINGLE
     Route: 030
     Dates: start: 20201024, end: 20201024

REACTIONS (3)
  - Product preparation error [Unknown]
  - Drug ineffective [Unknown]
  - Injection site pain [Recovered/Resolved]
